FAERS Safety Report 10178446 (Version 1)
Quarter: 2014Q2

REPORT INFORMATION
  Report Type: Other
  Country: DK (occurrence: DK)
  Receive Date: 20140519
  Receipt Date: 20140519
  Transmission Date: 20141212
  Serious: Yes (Other)
  Sender: FDA-Public Use
  Company Number: DK-TAKEDA-2014TEU003883

PATIENT
  Age: 58 Year
  Sex: Male

DRUGS (7)
  1. ACTOS [Suspect]
     Indication: TYPE 2 DIABETES MELLITUS
     Dosage: 45 MG, QD
     Route: 065
     Dates: start: 20020422, end: 20041124
  2. AVANDIA [Suspect]
     Indication: TYPE 2 DIABETES MELLITUS
     Dosage: 8 MG, QD
     Route: 065
     Dates: start: 20041124, end: 20060726
  3. CORODIL                            /00574902/ [Concomitant]
     Indication: HYPERTENSION
     Dosage: 10 MG, QD
  4. GABAPENTIN [Concomitant]
     Indication: NEUROPATHY PERIPHERAL
     Dosage: 300 MG, QD
     Dates: start: 20011022
  5. METFORMIN [Concomitant]
     Indication: TYPE 2 DIABETES MELLITUS
  6. INSULIN                            /00646001/ [Concomitant]
     Indication: TYPE 2 DIABETES MELLITUS
  7. ZARATOR                            /01326102/ [Concomitant]
     Indication: LOW DENSITY LIPOPROTEIN INCREASED
     Dosage: 10 MG, QD

REACTIONS (3)
  - Maculopathy [Recovered/Resolved with Sequelae]
  - Visual acuity reduced [Not Recovered/Not Resolved]
  - Macular oedema [Unknown]
